FAERS Safety Report 18687498 (Version 1)
Quarter: 2020Q4

REPORT INFORMATION
  Report Type: Other
  Country: DE (occurrence: DE)
  Receive Date: 20201231
  Receipt Date: 20201231
  Transmission Date: 20210114
  Serious: Yes (Other)
  Sender: FDA-Public Use
  Company Number: DE-APOTEX-2020AP025144

PATIENT
  Sex: Female

DRUGS (7)
  1. L-THYROXIN [Concomitant]
     Active Substance: LEVOTHYROXINE SODIUM
     Indication: HYPOTHYROIDISM
     Dosage: 75 MICROGRAM,QD, (75 MICROGRAM /D)
     Route: 064
     Dates: start: 20190330, end: 20191215
  2. RANITIDINE. [Concomitant]
     Active Substance: RANITIDINE
     Indication: GASTRITIS
     Dosage: 75 MILLIGRAM, QD, (75 MG/D)
     Route: 064
     Dates: start: 20190516, end: 20190517
  3. SEROXAT [Suspect]
     Active Substance: PAROXETINE HYDROCHLORIDE
     Indication: DEPRESSION
     Dosage: UNK, (16 [MG / D (TO 13 MG / D)] / DOSAGE REDUCE TO 13 MG / D IN THE END OF PREGNANCY)
     Route: 064
     Dates: start: 20190330, end: 20191215
  4. VITEX AGNUS CASTUS [Concomitant]
     Indication: MENSTRUAL CYCLE MANAGEMENT
     Dosage: UNK
     Route: 064
     Dates: start: 20190330, end: 20190430
  5. OMEPRAZOLE. [Concomitant]
     Active Substance: OMEPRAZOLE
     Indication: GASTRITIS
     Dosage: UNK, NOT EVERY DAY
     Route: 064
  6. LACTIC ACID. [Concomitant]
     Active Substance: LACTIC ACID
     Indication: PROPHYLAXIS
     Dosage: UNK, (DURING THE FIRST 3 MONTHS TWICE PER WEEK, THEN ONCE PER WEEK)
     Route: 064
  7. ALDARA [Concomitant]
     Active Substance: IMIQUIMOD
     Indication: ANOGENITAL WARTS
     Dosage: TWO TO THREE TIMES PER WEEK
     Route: 064
     Dates: start: 20190417, end: 20190430

REACTIONS (2)
  - Hepatomegaly [Recovered/Resolved]
  - Foetal exposure during pregnancy [Unknown]

NARRATIVE: CASE EVENT DATE: 20191215
